FAERS Safety Report 7398264-8 (Version None)
Quarter: 2011Q2

REPORT INFORMATION
  Report Type: 
  Country: None (occurrence: None)
  Receive Date: 20110406
  Receipt Date: 20110401
  Transmission Date: 20111010
  Serious: Yes (Death, Other)
  Sender: FDA-Public Use
  Company Number: KR-BAYER-2011-028638

PATIENT
  Age: 76 Year
  Sex: Female

DRUGS (1)
  1. GADOVIST [Suspect]
     Indication: MEMORY IMPAIRMENT
     Dosage: 7.5 ML, ONCE
     Dates: start: 20110401, end: 20110401

REACTIONS (4)
  - CYANOSIS [None]
  - PULMONARY OEDEMA [None]
  - DIZZINESS [None]
  - DEATH [None]
